FAERS Safety Report 9303445 (Version 2)
Quarter: 2013Q3

REPORT INFORMATION
  Report Type: Report from Study
  Country: AU (occurrence: AU)
  Receive Date: 20130522
  Receipt Date: 20130913
  Transmission Date: 20140515
  Serious: Yes (Other)
  Sender: FDA-Public Use
  Company Number: AU-BAYER-2013-053350

PATIENT
  Age: 41 Year
  Sex: Female

DRUGS (1)
  1. BETAFERON [Suspect]
     Indication: RELAPSING-REMITTING MULTIPLE SCLEROSIS
     Dosage: 0.25 MG/ML, QOD
     Route: 058
     Dates: start: 20130424

REACTIONS (8)
  - Dizziness [None]
  - Sensation of heaviness [None]
  - Gait disturbance [None]
  - Injection site pain [Unknown]
  - Pain in extremity [None]
  - Dizziness [Unknown]
  - Sensation of heaviness [Unknown]
  - Fatigue [Unknown]
